FAERS Safety Report 7380549-2 (Version None)
Quarter: 2011Q1

REPORT INFORMATION
  Report Type: 
  Country: None (occurrence: None)
  Receive Date: 20110321
  Receipt Date: 20110309
  Transmission Date: 20110831
  Serious: Yes (Hospitalization)
  Sender: FDA-Public Use
  Company Number: 1-21232660

PATIENT
  Age: 53 Year
  Sex: Female
  Weight: 68.0396 kg

DRUGS (15)
  1. FENTANYL-100 [Suspect]
     Indication: FIBROMYALGIA
     Dosage: TRANSDERMAL
     Route: 062
     Dates: start: 20000101, end: 20091201
  2. REMERON [Concomitant]
  3. CLONAZEPAM [Concomitant]
  4. MIRALAX [Concomitant]
  5. FENTANYL CITRATE [Suspect]
     Indication: FIBROMYALGIA
     Dosage: 100 MCG/HR Q 72 HR, TRANSDERMAL
     Route: 062
     Dates: start: 20091201
  6. SOMA [Concomitant]
  7. PROZAC [Concomitant]
  8. PREMARIN [Concomitant]
  9. MAGNESIUM SOLUTION [Concomitant]
  10. RESTASIS [Concomitant]
  11. VICODIN [Concomitant]
  12. DETROL LA [Concomitant]
  13. FLUOROMETHOLONE OPHTHALMIC SUSPENSION [Suspect]
     Dosage: 1 DROP PER EY, 3X DAY, OPHTHALMIC
     Route: 047
  14. FLAX SEE OIL [Concomitant]
  15. DULCOALX [Concomitant]

REACTIONS (29)
  - HYPERHIDROSIS [None]
  - RASH GENERALISED [None]
  - DIARRHOEA [None]
  - TREMOR [None]
  - BLOOD GLUCOSE INCREASED [None]
  - MALAISE [None]
  - FEELING ABNORMAL [None]
  - CHEST DISCOMFORT [None]
  - DYSKINESIA [None]
  - DRUG DOSE OMISSION [None]
  - EYE DISORDER [None]
  - IMPAIRED DRIVING ABILITY [None]
  - FLANK PAIN [None]
  - PALPITATIONS [None]
  - FEELING HOT [None]
  - CONSTIPATION [None]
  - VISUAL IMPAIRMENT [None]
  - OVERDOSE [None]
  - PRURITUS GENERALISED [None]
  - ASTHENIA [None]
  - DRUG WITHDRAWAL SYNDROME [None]
  - FLUSHING [None]
  - PAIN [None]
  - TACHYCARDIA [None]
  - BACK PAIN [None]
  - VISUAL ACUITY REDUCED [None]
  - CHEST PAIN [None]
  - PRODUCT SUBSTITUTION ISSUE [None]
  - ABASIA [None]
